FAERS Safety Report 18705446 (Version 3)
Quarter: 2021Q1

REPORT INFORMATION
  Report Type: Spontaneous
  Country: US (occurrence: US)
  Receive Date: 20210106
  Receipt Date: 20210129
  Transmission Date: 20210419
  Serious: Yes (Death, Life-Threatening, Hospitalization, Other)
  Sender: FDA-Public Use
  Company Number: US-AUROBINDO-AUR-APL-2021-000156

PATIENT
  Age: 31 Year
  Sex: Male

DRUGS (2)
  1. FERROUS SULFATE. [Suspect]
     Active Substance: FERROUS SULFATE
     Indication: PRODUCT USED FOR UNKNOWN INDICATION
     Dosage: 100 DOSAGE FORM, 1 TOTAL
     Route: 048
  2. ACETAMINOPHEN TABLET 325 MG [Suspect]
     Active Substance: ACETAMINOPHEN
     Indication: PRODUCT USED FOR UNKNOWN INDICATION
     Dosage: 100 DOSAGE FORM, 1 TOTAL
     Route: 048

REACTIONS (8)
  - Haemodynamic instability [Not Recovered/Not Resolved]
  - Intentional overdose [Fatal]
  - Acidosis [Not Recovered/Not Resolved]
  - Drug level increased [Recovering/Resolving]
  - Toxicity to various agents [Unknown]
  - Hypotension [Not Recovered/Not Resolved]
  - Unresponsive to stimuli [Not Recovered/Not Resolved]
  - Acute hepatic failure [Fatal]
